FAERS Safety Report 5027595-1 (Version None)
Quarter: 2006Q2

REPORT INFORMATION
  Report Type: 
  Country: None (occurrence: None)
  Receive Date: 20060616
  Receipt Date: 20060609
  Transmission Date: 20061013
  Serious: Yes (Other)
  Sender: FDA-Public Use
  Company Number: PHBS2006JP08779

PATIENT
  Sex: Male

DRUGS (3)
  1. DIOVAN [Suspect]
     Route: 048
  2. TAKEPRON [Suspect]
     Route: 048
  3. ALFAROL [Suspect]
     Route: 048

REACTIONS (1)
  - AGRANULOCYTOSIS [None]
